FAERS Safety Report 12779480 (Version 4)
Quarter: 2016Q4

REPORT INFORMATION
  Report Type: Report from Study
  Country: US (occurrence: US)
  Receive Date: 20160926
  Receipt Date: 20161221
  Transmission Date: 20170207
  Serious: Yes (Death, Hospitalization, Other)
  Sender: FDA-Public Use
  Company Number: PHEH2016US024300

PATIENT
  Age: 71 Year
  Sex: Female

DRUGS (1)
  1. GILENYA [Suspect]
     Active Substance: FINGOLIMOD HYDROCHLORIDE
     Indication: PRODUCT USED FOR UNKNOWN INDICATION
     Dosage: 0.5 MG, UNK
     Route: 048
     Dates: end: 20160930

REACTIONS (17)
  - Encephalopathy [Unknown]
  - Dementia [Unknown]
  - Dehydration [Unknown]
  - Intracranial hypotension [Unknown]
  - Hypertension [Unknown]
  - Encephalomalacia [Unknown]
  - Asthenia [Unknown]
  - Anaemia vitamin B12 deficiency [Unknown]
  - Shunt malfunction [Unknown]
  - Microangiopathy [Unknown]
  - Death [Fatal]
  - Hypovolaemia [Recovered/Resolved]
  - Anaemia folate deficiency [Unknown]
  - Multiple sclerosis relapse [Unknown]
  - Intervertebral disc degeneration [Unknown]
  - Vertebral foraminal stenosis [Unknown]
  - Cardiac failure congestive [Unknown]

NARRATIVE: CASE EVENT DATE: 201607
